FAERS Safety Report 25715544 (Version 1)
Quarter: 2025Q3

REPORT INFORMATION
  Report Type: Spontaneous
  Country: US (occurrence: US)
  Receive Date: 20250822
  Receipt Date: 20250822
  Transmission Date: 20251020
  Serious: Yes (Life-Threatening, Hospitalization, Disabling, Other)
  Sender: AUROBINDO
  Company Number: US-MLMSERVICE-20240320-4896634-1

PATIENT
  Age: 28 Year
  Sex: Female

DRUGS (1)
  1. AZITHROMYCIN [Suspect]
     Active Substance: AZITHROMYCIN
     Indication: Sinusitis bacterial
     Dosage: 500 MILLIGRAM, ONCE A DAY
     Route: 065
     Dates: start: 201412

REACTIONS (13)
  - Stevens-Johnson syndrome [Recovered/Resolved with Sequelae]
  - Keratitis [Recovering/Resolving]
  - Persistent corneal epithelial defect [Recovering/Resolving]
  - Meibomianitis [Recovering/Resolving]
  - Blindness [Recovering/Resolving]
  - Punctate keratitis [Recovering/Resolving]
  - Anxiety [Recovering/Resolving]
  - Depression [Recovering/Resolving]
  - Attention deficit hyperactivity disorder [Recovering/Resolving]
  - Post-traumatic stress disorder [Recovering/Resolving]
  - Condition aggravated [Recovering/Resolving]
  - Post inflammatory pigmentation change [Recovered/Resolved with Sequelae]
  - Rash [Recovered/Resolved]

NARRATIVE: CASE EVENT DATE: 20141201
